FAERS Safety Report 21354320 (Version 2)
Quarter: 2022Q4

REPORT INFORMATION
  Report Type: Report from Study
  Country: HU (occurrence: HU)
  Receive Date: 20220920
  Receipt Date: 20221014
  Transmission Date: 20230113
  Serious: No
  Sender: FDA-Public Use
  Company Number: HU-NOVARTISPH-NVSC2022HU209279

PATIENT

DRUGS (2)
  1. CANAKINUMAB [Suspect]
     Active Substance: CANAKINUMAB
     Indication: Pyrexia
     Dosage: UNK
     Route: 058
  2. PLACEBO [Suspect]
     Active Substance: UNSPECIFIED INGREDIENT
     Indication: Pyrexia
     Dosage: UNK
     Route: 058

REACTIONS (4)
  - Aphthous ulcer [Unknown]
  - Rash maculo-papular [Unknown]
  - Conjunctival ulcer [Unknown]
  - Rash [Unknown]
